FAERS Safety Report 5570935-5 (Version None)
Quarter: 2007Q4

REPORT INFORMATION
  Report Type: 
  Country: None (occurrence: None)
  Receive Date: 20071221
  Receipt Date: 20071217
  Transmission Date: 20080405
  Serious: Yes (Life-Threatening)
  Sender: FDA-Public Use
  Company Number: JP-JNJFOC-20071204963

PATIENT
  Age: 65 Year
  Sex: Male

DRUGS (1)
  1. FINIBAX [Suspect]
     Indication: SEPSIS
     Route: 041

REACTIONS (1)
  - ENTEROCOLITIS HAEMORRHAGIC [None]
